FAERS Safety Report 5016279-1 (Version None)
Quarter: 2006Q2

REPORT INFORMATION
  Report Type: 
  Country: None (occurrence: None)
  Receive Date: 20060414
  Receipt Date: 20060131
  Transmission Date: 20061013
  Serious: No
  Sender: FDA-Public Use
  Company Number: 2006SP000547

PATIENT
  Age: 54 Year
  Sex: Male
  Weight: 89.8122 kg

DRUGS (14)
  1. LUNESTA [Suspect]
     Indication: INITIAL INSOMNIA
     Dosage: 2 MG;HS;ORAL
     Route: 048
     Dates: start: 20060103
  2. TYLENOL (CAPLET) [Concomitant]
  3. ALEVE (CAPLET) [Concomitant]
  4. OXYCODONE HCL [Concomitant]
  5. LEVOTHROID [Concomitant]
  6. FLUDROCORTISONE [Concomitant]
  7. AMITRIPTYLINE HCL [Concomitant]
  8. CLONAZEPAM [Concomitant]
  9. DOXEPIN [Concomitant]
  10. TEMAZEPAM [Concomitant]
  11. FOSAMAX [Concomitant]
  12. CYCLOBENZAPRINE HCL [Concomitant]
  13. TRYPTOPHAN, L- [Concomitant]
  14. VALERIAN [Concomitant]

REACTIONS (1)
  - INITIAL INSOMNIA [None]
